FAERS Safety Report 14684620 (Version 1)
Quarter: 2018Q1

REPORT INFORMATION
  Report Type: Other
  Country: JP (occurrence: JP)
  Receive Date: 20180327
  Receipt Date: 20180327
  Transmission Date: 20180509
  Serious: Yes (Hospitalization)
  Sender: FDA-Public Use
  Company Number: JP-CARDINAL HEALTH SPECIALTY SOLUTIONS-2044619

PATIENT
  Age: 69 Year
  Sex: Female
  Weight: 59.3 kg

DRUGS (1)
  1. CILOSTAZOL. [Suspect]
     Active Substance: CILOSTAZOL
     Indication: CEREBRAL INFARCTION

REACTIONS (2)
  - IgA nephropathy [None]
  - Tubulointerstitial nephritis [Recovered/Resolved]
